FAERS Safety Report 17544516 (Version 1)
Quarter: 2020Q1

REPORT INFORMATION
  Report Type: Spontaneous
  Country: DE (occurrence: DE)
  Receive Date: 20200316
  Receipt Date: 20200316
  Transmission Date: 20200409
  Serious: Yes (Other)
  Sender: FDA-Public Use
  Company Number: NVSC2020DE071076

PATIENT
  Age: 79 Year
  Sex: Female

DRUGS (2)
  1. HYDROCHLOROTHIAZIDE. [Suspect]
     Active Substance: HYDROCHLOROTHIAZIDE
     Indication: PRODUCT USED FOR UNKNOWN INDICATION
     Dosage: USED FOR MANY YEARS
     Route: 048
  2. RAMILICH COMP [Suspect]
     Active Substance: HYDROCHLOROTHIAZIDE\RAMIPRIL
     Indication: PRODUCT USED FOR UNKNOWN INDICATION
     Dosage: UNK
     Route: 048

REACTIONS (1)
  - Skin cancer [Not Recovered/Not Resolved]

NARRATIVE: CASE EVENT DATE: 2019
